FAERS Safety Report 15983627 (Version 1)
Quarter: 2019Q1

REPORT INFORMATION
  Report Type: Spontaneous
  Country: CA (occurrence: CA)
  Receive Date: 20190220
  Receipt Date: 20190220
  Transmission Date: 20190418
  Serious: Yes (Hospitalization)
  Sender: FDA-Public Use
  Company Number: CA-AMGEN-CANSP2019024137

PATIENT
  Age: 81 Year
  Sex: Female
  Weight: 61 kg

DRUGS (30)
  1. CLONIDINE. [Concomitant]
     Active Substance: CLONIDINE
  2. FUROSEMIDE. [Concomitant]
     Active Substance: FUROSEMIDE
  3. PERINDOPRIL [Concomitant]
     Active Substance: PERINDOPRIL
  4. PRAVASTATIN SODIUM. [Concomitant]
     Active Substance: PRAVASTATIN SODIUM
  5. PREDNISONE. [Concomitant]
     Active Substance: PREDNISONE
  6. AMLODIPINE [Concomitant]
     Active Substance: AMLODIPINE BESYLATE
  7. CALCIUM CARBONATE. [Concomitant]
     Active Substance: CALCIUM CARBONATE
  8. INDAPAMIDE. [Concomitant]
     Active Substance: INDAPAMIDE
  9. NPH INSULIN [Concomitant]
     Active Substance: INSULIN BEEF
  10. SYNTHROID [Concomitant]
     Active Substance: LEVOTHYROXINE SODIUM
  11. VITAMIN D [Concomitant]
     Active Substance: CHOLECALCIFEROL
  12. LANTUS [Concomitant]
     Active Substance: INSULIN GLARGINE
     Route: 058
  13. OXAZEPAM. [Concomitant]
     Active Substance: OXAZEPAM
  14. ULORIC [Concomitant]
     Active Substance: FEBUXOSTAT
  15. PROLIA [Suspect]
     Active Substance: DENOSUMAB
     Indication: OSTEOPOROSIS
     Dosage: 60 MG/ML, Q6MO
     Route: 058
  16. BRICANYL [Concomitant]
     Active Substance: TERBUTALINE SULFATE
  17. HUMALOG [Concomitant]
     Active Substance: INSULIN LISPRO
  18. ISOSORBIDE MONONITRATE. [Concomitant]
     Active Substance: ISOSORBIDE MONONITRATE
  19. KAYEXALATE [Concomitant]
     Active Substance: SODIUM POLYSTYRENE SULFONATE
  20. RISPERIDONE. [Concomitant]
     Active Substance: RISPERIDONE
  21. SOLIFENACIN [Concomitant]
     Active Substance: SOLIFENACIN
  22. ACETAMINOPHEN. [Concomitant]
     Active Substance: ACETAMINOPHEN
  23. IRBESARTAN. [Concomitant]
     Active Substance: IRBESARTAN
  24. MIRTAZAPINE. [Concomitant]
     Active Substance: MIRTAZAPINE
  25. PANTOPRAZOLE [Concomitant]
     Active Substance: PANTOPRAZOLE
  26. SPIRIVA [Concomitant]
     Active Substance: TIOTROPIUM BROMIDE MONOHYDRATE
  27. BISOPROLOL [Concomitant]
     Active Substance: BISOPROLOL
  28. PREGABALIN. [Concomitant]
     Active Substance: PREGABALIN
  29. SYMBICORT [Concomitant]
     Active Substance: BUDESONIDE\FORMOTEROL FUMARATE DIHYDRATE
  30. SODIUM BICARBONATE. [Concomitant]
     Active Substance: SODIUM BICARBONATE

REACTIONS (2)
  - Hypocalcaemia [Not Recovered/Not Resolved]
  - Hyperparathyroidism [Not Recovered/Not Resolved]
